FAERS Safety Report 20562754 (Version 1)
Quarter: 2022Q1

REPORT INFORMATION
  Report Type: Spontaneous
  Country: CN (occurrence: None)
  Receive Date: 20220307
  Receipt Date: 20220307
  Transmission Date: 20220423
  Serious: Yes (Other)
  Sender: FDA-Public Use
  Company Number: CN-ROCHE-3035913

PATIENT
  Age: 44 Year
  Sex: Male

DRUGS (3)
  1. TECENTRIQ [Suspect]
     Active Substance: ATEZOLIZUMAB
     Indication: Hepatocellular carcinoma
     Route: 065
  2. TECENTRIQ [Suspect]
     Active Substance: ATEZOLIZUMAB
     Indication: Tumour thrombosis
  3. AVASTIN [Suspect]
     Active Substance: BEVACIZUMAB
     Indication: Hepatocellular carcinoma
     Route: 065

REACTIONS (7)
  - Skin discolouration [Unknown]
  - Ascites [Unknown]
  - Appetite disorder [Unknown]
  - Platelet count decreased [Unknown]
  - Blood albumin decreased [Unknown]
  - Protein total decreased [Unknown]
  - Liver function test abnormal [Unknown]
